FAERS Safety Report 5698913-6 (Version None)
Quarter: 2008Q2

REPORT INFORMATION
  Report Type: 
  Country: None (occurrence: None)
  Receive Date: 20080408
  Receipt Date: 20060803
  Transmission Date: 20081010
  Serious: No
  Sender: FDA-Public Use
  Company Number: US-BAYER-US-2006-021998

PATIENT
  Age: 62 Year
  Sex: Female

DRUGS (4)
  1. ULTRAVIST (PHARMACY BULK) [Suspect]
     Route: 042
     Dates: start: 20060719, end: 20060719
  2. MAGNEVIST [Suspect]
     Indication: NUCLEAR MAGNETIC RESONANCE IMAGING
     Dates: start: 20060719, end: 20060719
  3. BENADRYL [Concomitant]
  4. TYLENOL (CAPLET) [Concomitant]

REACTIONS (4)
  - DIZZINESS [None]
  - INJECTION SITE DISCOLOURATION [None]
  - INJECTION SITE PAIN [None]
  - PHLEBITIS [None]
